FAERS Safety Report 12804645 (Version 1)
Quarter: 2016Q4

REPORT INFORMATION
  Report Type: Spontaneous
  Country: US (occurrence: US)
  Receive Date: 20161003
  Receipt Date: 20161003
  Transmission Date: 20170207
  Serious: No
  Sender: FDA-Public Use
  Company Number: US-BANPHARM-20154273

PATIENT
  Sex: Male

DRUGS (1)
  1. LOPERAMIDE HCL CAPSULES, 2 MG [Suspect]
     Active Substance: LOPERAMIDE HYDROCHLORIDE
     Indication: DIARRHOEA
     Dosage: 1 DF, ONCE,
     Route: 048
     Dates: start: 20150821, end: 20150821

REACTIONS (1)
  - Throat irritation [Recovered/Resolved]

NARRATIVE: CASE EVENT DATE: 20150821
